FAERS Safety Report 23289234 (Version 1)
Quarter: 2023Q4

REPORT INFORMATION
  Report Type: Spontaneous
  Country: US (occurrence: None)
  Receive Date: 20231211
  Receipt Date: 20231211
  Transmission Date: 20240109
  Serious: No
  Sender: FDA-Public Use
  Company Number: None

PATIENT
  Age: 41 Year
  Sex: Female
  Weight: 43.65 kg

DRUGS (3)
  1. VYLEESI [Suspect]
     Active Substance: BREMELANOTIDE ACETATE
     Indication: Libido decreased
     Dosage: FREQUENCY : AS NEEDED;?OTHER ROUTE : INJECTION;?
     Route: 050
     Dates: start: 20231208, end: 20231208
  2. WEGOVY [Concomitant]
     Active Substance: SEMAGLUTIDE
  3. VITAMINS [Concomitant]
     Active Substance: VITAMINS

REACTIONS (8)
  - Muscle spasms [None]
  - Muscle twitching [None]
  - Dyspnoea [None]
  - Muscle disorder [None]
  - Nervous system disorder [None]
  - Vaginal disorder [None]
  - Muscle spasms [None]
  - Tremor [None]

NARRATIVE: CASE EVENT DATE: 20231208
